FAERS Safety Report 9103317 (Version 3)
Quarter: 2013Q4

REPORT INFORMATION
  Report Type: Spontaneous
  Country: US (occurrence: US)
  Receive Date: 20130219
  Receipt Date: 20131024
  Transmission Date: 20140711
  Serious: Yes (Hospitalization, Other)
  Sender: FDA-Public Use
  Company Number: US-SANOFI-AVENTIS-2013SA013102

PATIENT
  Age: 58 Year
  Sex: Male

DRUGS (4)
  1. AUBAGIO [Suspect]
     Indication: MULTIPLE SCLEROSIS
     Route: 048
     Dates: start: 20121207
  2. AUBAGIO [Suspect]
     Indication: MULTIPLE SCLEROSIS
     Route: 048
     Dates: start: 201301, end: 20130222
  3. AUBAGIO [Suspect]
     Indication: MULTIPLE SCLEROSIS
     Route: 048
  4. FAMPRIDINE [Suspect]
     Indication: GAIT DISTURBANCE
     Route: 048
     Dates: end: 201210

REACTIONS (9)
  - Pneumonia [Recovering/Resolving]
  - Large intestine perforation [Recovered/Resolved]
  - Influenza [Unknown]
  - White blood cell count decreased [Unknown]
  - Respiratory tract inflammation [Recovering/Resolving]
  - Chest pain [Recovering/Resolving]
  - Dysphagia [Recovering/Resolving]
  - Gait disturbance [Unknown]
  - Immune system disorder [Recovering/Resolving]
